FAERS Safety Report 6177457-1 (Version None)
Quarter: 2009Q2

REPORT INFORMATION
  Report Type: 
  Country: None (occurrence: None)
  Receive Date: 20090501
  Receipt Date: 20090501
  Transmission Date: 20091009
  Serious: Yes (Hospitalization)
  Sender: FDA-Public Use
  Company Number: None

PATIENT
  Age: 51 Year
  Sex: Male
  Weight: 95.7 kg

DRUGS (3)
  1. DIOVAN HCT [Suspect]
     Indication: HYPERTENSION
     Dosage: PO QD
     Route: 048
  2. LOTREL [Suspect]
     Indication: HYPERTENSION
     Dosage: 10/20MG PO QD
     Route: 048
  3. METOPROLOL [Concomitant]

REACTIONS (3)
  - CELLULITIS [None]
  - HYPERKALAEMIA [None]
  - RENAL FAILURE ACUTE [None]
